FAERS Safety Report 16423039 (Version 3)
Quarter: 2020Q2

REPORT INFORMATION
  Report Type: Report from Study
  Country: US (occurrence: US)
  Receive Date: 20190612
  Receipt Date: 20200409
  Transmission Date: 20200713
  Serious: Yes (Hospitalization)
  Sender: FDA-Public Use
  Company Number: US-ACTELION-A-US2016-146792

PATIENT
  Age: 65 Year
  Sex: Female
  Weight: 70.3 kg

DRUGS (3)
  1. OPSUMIT [Suspect]
     Active Substance: MACITENTAN
     Indication: PULMONARY HYPERTENSION
     Dosage: 10 MG, QD
     Route: 048
     Dates: start: 20151027
  2. OPSUMIT [Suspect]
     Active Substance: MACITENTAN
     Dosage: UNK
     Route: 048
  3. REMODULIN [Concomitant]
     Active Substance: TREPROSTINIL

REACTIONS (10)
  - Pain in extremity [Unknown]
  - Dyspnoea [Unknown]
  - Pneumonia viral [Unknown]
  - Cardiac arrest [Unknown]
  - Hospitalisation [Unknown]
  - Sinusitis [Unknown]
  - Skin ulcer [Unknown]
  - Condition aggravated [Unknown]
  - Syncope [Unknown]
  - Catheter management [Recovered/Resolved]

NARRATIVE: CASE EVENT DATE: 20180831
